FAERS Safety Report 5582073-6 (Version None)
Quarter: 2007Q4

REPORT INFORMATION
  Report Type: 
  Country: None (occurrence: None)
  Receive Date: 20071130
  Receipt Date: 20070627
  Transmission Date: 20080405
  Serious: No
  Sender: FDA-Public Use
  Company Number: US200706001152

PATIENT
  Age: 64 Year
  Sex: Female
  Weight: 150.1 kg

DRUGS (1)
  1. BYETTA [Suspect]
     Indication: TYPE 2 DIABETES MELLITUS
     Dosage: 10 UG, SUBCUTANEOUS
     Route: 058
     Dates: start: 20070604

REACTIONS (5)
  - DECREASED APPETITE [None]
  - INCREASED APPETITE [None]
  - INJECTION SITE ERYTHEMA [None]
  - NAUSEA [None]
  - VOMITING [None]
